FAERS Safety Report 5787505-6 (Version None)
Quarter: 2008Q2

REPORT INFORMATION
  Report Type: 
  Country: None (occurrence: None)
  Receive Date: 20080625
  Receipt Date: 20071207
  Transmission Date: 20081010
  Serious: No
  Sender: FDA-Public Use
  Company Number: US-ASTRAZENECA-2007UW25514

PATIENT
  Age: 80 Year
  Sex: Male
  Weight: 37.1 kg

DRUGS (14)
  1. PULMICORT RESPULES [Suspect]
     Indication: CHRONIC OBSTRUCTIVE PULMONARY DISEASE
     Route: 055
     Dates: start: 20070501
  2. PULMICORT RESPULES [Suspect]
     Indication: BRONCHITIS
     Route: 055
     Dates: start: 20070501
  3. PREDNISONE [Concomitant]
  4. CITALOPRAM HYDROBROMIDE [Concomitant]
  5. FINASTERIDE [Concomitant]
  6. ALBUTEROL [Concomitant]
  7. HCTZ-TRIAMETERENE [Concomitant]
  8. OMEPRAZOLE [Concomitant]
     Route: 048
  9. POTASSIUM CHLORIDE [Concomitant]
  10. SIMVASTATIN [Concomitant]
  11. GUAIFENESIN [Concomitant]
  12. UNIPHYL [Concomitant]
  13. ASPIRIN [Concomitant]
  14. MULTI-VITAMIN [Concomitant]

REACTIONS (6)
  - COUGH [None]
  - DEPRESSION [None]
  - FATIGUE [None]
  - PAIN [None]
  - VISION BLURRED [None]
  - WRONG TECHNIQUE IN DRUG USAGE PROCESS [None]
